FAERS Safety Report 10255036 (Version 2)
Quarter: 2014Q2

REPORT INFORMATION
  Report Type: Spontaneous
  Country: US (occurrence: US)
  Receive Date: 20140624
  Receipt Date: 20140624
  Transmission Date: 20141212
  Serious: No
  Sender: FDA-Public Use
  Company Number: US-MYLANLABS-2013S1023924

PATIENT
  Age: 52 Year
  Sex: Male

DRUGS (8)
  1. PRAVASTATIN SODIUM TABLETS USP [Suspect]
     Indication: CARDIAC DISORDER
     Dates: start: 20130819, end: 20130829
  2. PRAVASTATIN SODIUM TABLETS USP [Suspect]
     Indication: POOR PERIPHERAL CIRCULATION
     Dates: start: 20130819, end: 20130829
  3. AMLODIPINE [Concomitant]
  4. PLAVIX [Concomitant]
  5. TORSEMIDE [Concomitant]
  6. COREG [Concomitant]
  7. ASPIRIN [Concomitant]
  8. RAMIPRIL [Concomitant]

REACTIONS (1)
  - Hypersensitivity [Recovered/Resolved]
